FAERS Safety Report 4645046-3 (Version None)
Quarter: 2005Q2

REPORT INFORMATION
  Report Type: 
  Country: None (occurrence: None)
  Receive Date: 20050422
  Receipt Date: 20050411
  Transmission Date: 20051028
  Serious: Yes (Other)
  Sender: FDA-Public Use
  Company Number: 2005013838

PATIENT
  Age: 56 Year
  Sex: Male
  Weight: 104.3273 kg

DRUGS (4)
  1. BEXTRA [Suspect]
     Indication: OSTEOARTHRITIS
     Dosage: 20 MG (20 MG, 1 IN 1D), ORAL
     Route: 048
     Dates: start: 20030101
  2. DRIXORAL [Concomitant]
  3. ASPIRIN [Concomitant]
  4. ATORVASTATIN CALCIUM [Concomitant]

REACTIONS (9)
  - DRUG INEFFECTIVE [None]
  - DRY SKIN [None]
  - ERYTHEMA MULTIFORME [None]
  - IMPAIRED HEALING [None]
  - PSORIASIS [None]
  - SELF-MEDICATION [None]
  - SKIN DISCOLOURATION [None]
  - SKIN NECROSIS [None]
  - THERAPY NON-RESPONDER [None]
